FAERS Safety Report 24279018 (Version 1)
Quarter: 2024Q3

REPORT INFORMATION
  Report Type: Spontaneous
  Country: FR (occurrence: FR)
  Receive Date: 20240903
  Receipt Date: 20240903
  Transmission Date: 20241017
  Serious: Yes (Life-Threatening)
  Sender: DAIICHI
  Company Number: None

PATIENT
  Age: 68 Year
  Sex: Male
  Weight: 78 kg

DRUGS (1)
  1. ENHERTU [Suspect]
     Active Substance: FAM-TRASTUZUMAB DERUXTECAN-NXKI
     Indication: Lung adenocarcinoma
     Dosage: UNK
     Route: 042
     Dates: start: 20231101, end: 20240701

REACTIONS (1)
  - Interstitial lung disease [Not Recovered/Not Resolved]

NARRATIVE: CASE EVENT DATE: 20240811
